FAERS Safety Report 7938180-3 (Version None)
Quarter: 2011Q4

REPORT INFORMATION
  Report Type: 
  Country: None (occurrence: None)
  Receive Date: 20111123
  Receipt Date: 20110929
  Transmission Date: 20120403
  Serious: No
  Sender: FDA-Public Use
  Company Number: US-BRISTOL-MYERS SQUIBB COMPANY-16132961

PATIENT
  Age: 50 Year
  Sex: Male

DRUGS (4)
  1. ACTOS [Suspect]
  2. METFORMIN HCL [Suspect]
  3. ONGLYZA [Suspect]
     Route: 065
  4. INSULIN [Suspect]

REACTIONS (1)
  - DRUG INEFFECTIVE [None]
